APPROVED DRUG PRODUCT: DESOGESTREL AND ETHINYL ESTRADIOL
Active Ingredient: DESOGESTREL; ETHINYL ESTRADIOL
Strength: 0.15MG,N/A;0.02MG,0.01MG
Dosage Form/Route: TABLET;ORAL-28
Application: A209170 | Product #001 | TE Code: AB
Applicant: NAARI PTE LTD
Approved: Jun 5, 2017 | RLD: No | RS: No | Type: RX